FAERS Safety Report 9181441 (Version 2)
Quarter: 2013Q3

REPORT INFORMATION
  Report Type: Report from Study
  Country: JP (occurrence: JP)
  Receive Date: 20130322
  Receipt Date: 20130701
  Transmission Date: 20140515
  Serious: Yes (Life-Threatening)
  Sender: FDA-Public Use
  Company Number: JP-BRISTOL-MYERS SQUIBB COMPANY-18695056

PATIENT
  Age: 1 Day
  Sex: Female
  Weight: 2.48 kg

DRUGS (1)
  1. BARACLUDE [Suspect]
     Dosage: INTER ON:28APR2012, RESTART ON:21NOV12
     Route: 064
     Dates: start: 20120421, end: 20130112

REACTIONS (2)
  - Congenital anaemia [Recovered/Resolved]
  - Shock haemorrhagic [Recovered/Resolved]
